FAERS Safety Report 21015684 (Version 1)
Quarter: 2022Q2

REPORT INFORMATION
  Report Type: Other
  Country: US (occurrence: None)
  Receive Date: 20220628
  Receipt Date: 20220628
  Transmission Date: 20220720
  Serious: Yes (Other)
  Sender: FDA-Public Use
  Company Number: US-ROCHE-3124232

PATIENT
  Age: 64 Year
  Sex: Female

DRUGS (7)
  1. CAPECITABINE [Suspect]
     Active Substance: CAPECITABINE
     Indication: Skin cancer metastatic
     Dosage: 3 CYCLES
     Route: 048
  2. CARBOPLATIN [Suspect]
     Active Substance: CARBOPLATIN
     Indication: Skin cancer metastatic
     Dosage: 4 CYCLES
     Route: 065
  3. PACLITAXEL [Suspect]
     Active Substance: PACLITAXEL
     Indication: Skin cancer metastatic
     Dosage: 4 CYCLES
     Route: 065
  4. PACLITAXEL [Suspect]
     Active Substance: PACLITAXEL
     Dosage: 3 CYCLES
     Route: 065
  5. PEMBROLIZUMAB [Suspect]
     Active Substance: PEMBROLIZUMAB
     Indication: Skin cancer metastatic
     Route: 042
  6. GEMCITABINE [Concomitant]
     Active Substance: GEMCITABINE
     Indication: Skin cancer metastatic
  7. DOCETAXEL [Concomitant]
     Active Substance: DOCETAXEL
     Indication: Skin cancer metastatic

REACTIONS (1)
  - Disease progression [Unknown]
